FAERS Safety Report 18127973 (Version 2)
Quarter: 2021Q3

REPORT INFORMATION
  Report Type: Spontaneous
  Country: US (occurrence: US)
  Receive Date: 20200810
  Receipt Date: 20210702
  Transmission Date: 20211014
  Serious: Yes (Other)
  Sender: FDA-Public Use
  Company Number: US-GLAXOSMITHKLINE-US2020154436

PATIENT
  Sex: Female

DRUGS (3)
  1. ZANTAC [Suspect]
     Active Substance: RANITIDINE HYDROCHLORIDE
     Indication: HYSTERECTOMY
     Dosage: 75 MG, QD
     Route: 065
     Dates: start: 201001, end: 201109
  2. ZANTAC [Suspect]
     Active Substance: RANITIDINE HYDROCHLORIDE
     Dates: start: 20100615, end: 20110915
  3. ZANTAC [Suspect]
     Active Substance: RANITIDINE HYDROCHLORIDE
     Indication: HYSTERECTOMY
     Dosage: 75 MG, QD
     Route: 065
     Dates: start: 201001, end: 201109

REACTIONS (2)
  - Ovarian cancer [Unknown]
  - Cervix carcinoma [Unknown]
